FAERS Safety Report 23851228 (Version 2)
Quarter: 2024Q2

REPORT INFORMATION
  Report Type: Spontaneous
  Country: US (occurrence: US)
  Receive Date: 20240514
  Receipt Date: 20240611
  Transmission Date: 20240716
  Serious: Yes (Hospitalization)
  Sender: FDA-Public Use
  Company Number: US-AUROBINDO-AUR-APL-2024-022431

PATIENT
  Age: 20 Year
  Sex: Male

DRUGS (1)
  1. CEPHALEXIN [Suspect]
     Active Substance: CEPHALEXIN
     Indication: Staphylococcal infection
     Dosage: UNK
     Route: 065

REACTIONS (1)
  - Drug ineffective [Unknown]
